FAERS Safety Report 6615149-2 (Version None)
Quarter: 2010Q1

REPORT INFORMATION
  Report Type: 
  Country: None (occurrence: None)
  Receive Date: 20100305
  Receipt Date: 20100226
  Transmission Date: 20100710
  Serious: No
  Sender: FDA-Public Use
  Company Number: DE-ASTRAZENECA-2010SE02698

PATIENT
  Age: 59 Year
  Sex: Female
  Weight: 74 kg

DRUGS (9)
  1. SEROQUEL [Suspect]
     Indication: FIBROMYALGIA
     Dosage: 25-50 MG DAILY
     Route: 048
     Dates: start: 20080901
  2. SEROQUEL [Suspect]
     Indication: PAIN
     Dosage: 25-50 MG DAILY
     Route: 048
     Dates: start: 20080901
  3. SEROQUEL [Suspect]
     Route: 048
     Dates: start: 20091001
  4. SEROQUEL [Suspect]
     Route: 048
     Dates: start: 20091001
  5. SEROQUEL [Suspect]
     Route: 048
     Dates: start: 20080101
  6. SEROQUEL [Suspect]
     Route: 048
     Dates: start: 20080101
  7. SEROQUEL [Suspect]
     Route: 048
     Dates: start: 20080101
  8. SEROQUEL [Suspect]
     Route: 048
     Dates: start: 20080101
  9. LITHIUM CARBONATE [Concomitant]

REACTIONS (4)
  - HAEMATOLOGY TEST ABNORMAL [None]
  - HYPERCHOLESTEROLAEMIA [None]
  - HYPERGLYCAEMIA [None]
  - LOW DENSITY LIPOPROTEIN INCREASED [None]
